FAERS Safety Report 5981524-2 (Version None)
Quarter: 2008Q4

REPORT INFORMATION
  Report Type: 
  Country: None (occurrence: None)
  Receive Date: 20081205
  Receipt Date: 20081126
  Transmission Date: 20090506
  Serious: Yes (Hospitalization)
  Sender: FDA-Public Use
  Company Number: FR-ROCHE-599883

PATIENT
  Sex: Male

DRUGS (9)
  1. ROCEPHIN [Suspect]
     Indication: DRUG USE FOR UNKNOWN INDICATION
     Dosage: REPORTED STRENGTH AND FORMULATION: INJECTABLE SOLUTION.
     Route: 042
     Dates: start: 20081003, end: 20081003
  2. ZOVIRAX [Suspect]
     Indication: ENCEPHALITIS HERPES
     Dosage: REPORTED STRENGTH AND FORMULATION: INJECTABLE SOLUTION.
     Route: 042
     Dates: start: 20081003, end: 20081006
  3. AMLOD [Concomitant]
     Dosage: REPORTED STRENGHT AND TDD-10 1/DAY. TAKING MEDICATION FOR MORE THAN 8 MONTHS.
     Dates: end: 20081006
  4. PLAVIX [Concomitant]
     Dosage: REPORTED TDD: 1/DAY. TAKING MEDICATION FOR MORE THAN 8 MONTHS.
     Dates: end: 20081006
  5. DI-ACTANE [Concomitant]
     Dosage: REPORTED DRUG, STRENGTH AND TDD: DIACTANE 200:2/DAY. TAKING MEDICATION FOR MORE THAN 8 MONTHS.
     Dates: end: 20081006
  6. PRITOR [Concomitant]
     Dosage: REPORTED STRENGTH AND TDD-40 1/DAY. TAKING MEDICATION FOR MORE THAN 8 MONTHS.
     Dates: end: 20081006
  7. LIPANTHYL [Concomitant]
     Dosage: REPORTED TDD: 1/DAY. TAKING MEDICATION FOR MORE THAN 8 MONTHS.
     Dates: end: 20081006
  8. TEMESTA [Concomitant]
     Dosage: REPORTED STRENGTH AND TDD-2.5 1/DAY. TAKING MEDICATION FOR MORE THAN 8 MONTHS.
     Dates: end: 20081003
  9. NORMISON [Concomitant]
     Dosage: REPORTED STRENGTH AND TDD-10 1/DAY. TAKING MEDICATION FOR MORE THAN 8 MONTHS.
     Dates: end: 20081003

REACTIONS (2)
  - DIALYSIS [None]
  - RENAL FAILURE ACUTE [None]
